FAERS Safety Report 14660475 (Version 1)
Quarter: 2018Q1

REPORT INFORMATION
  Report Type: Spontaneous
  Country: US (occurrence: US)
  Receive Date: 20180317
  Receipt Date: 20180317
  Transmission Date: 20180509
  Serious: Yes (Disabling)
  Sender: FDA-Public Use
  Company Number: None

PATIENT
  Age: 49 Year
  Sex: Female
  Weight: 54 kg

DRUGS (23)
  1. BUPROPION HCL ER [Concomitant]
     Active Substance: BUPROPION HYDROCHLORIDE
  2. METHYLPHENIDATE HCL 20 MG TAB IMPA [Suspect]
     Active Substance: METHYLPHENIDATE HYDROCHLORIDE
     Indication: ATTENTION DEFICIT/HYPERACTIVITY DISORDER
     Dosage: ?          QUANTITY:1 TABLET(S);?
     Route: 048
     Dates: start: 20171216, end: 20180316
  3. TIROSINT [Concomitant]
     Active Substance: LEVOTHYROXINE SODIUM
  4. CYTOMEL [Concomitant]
     Active Substance: LIOTHYRONINE SODIUM
  5. TRAZADONE HCL [Concomitant]
     Active Substance: TRAZODONE HYDROCHLORIDE
  6. BIOTIN [Concomitant]
     Active Substance: BIOTIN
  7. PANTOTHENIC ACID (B5) [Concomitant]
  8. POTASSIUM [Concomitant]
     Active Substance: POTASSIUM
  9. L-THEANINE [Concomitant]
     Active Substance: DIETARY SUPPLEMENT
  10. P5P (B6) [Concomitant]
  11. ALPHA LIPOIC ACID (ALA) [Concomitant]
  12. MAGNESIUM CITRATE. [Concomitant]
     Active Substance: MAGNESIUM CITRATE
  13. HOLY BASIL [Concomitant]
  14. ASHWAGANDA [Concomitant]
  15. VITAMIN D3 [Concomitant]
     Active Substance: CHOLECALCIFEROL
  16. KETO DHEA [Concomitant]
  17. NAC (N-ACETYL-L-CYSTEINE) [Concomitant]
  18. PROBIOTIC [Concomitant]
     Active Substance: PROBIOTICS NOS
  19. B2 (RIBOFLAVIN) [Concomitant]
  20. METHYL B12 [Concomitant]
  21. METHYL FOLATE [Concomitant]
  22. SELENIUM [Concomitant]
     Active Substance: SELENIUM
  23. SENNA [Concomitant]
     Active Substance: SENNA LEAF\SENNOSIDES\SENNOSIDES A AND B

REACTIONS (10)
  - Loss of employment [None]
  - Disturbance in attention [None]
  - Drug ineffective [None]
  - Agitation [None]
  - Product substitution issue [None]
  - Frustration tolerance decreased [None]
  - Emotional disorder [None]
  - Suicidal ideation [None]
  - Memory impairment [None]
  - Stress [None]

NARRATIVE: CASE EVENT DATE: 20180305
